FAERS Safety Report 8297717-8 (Version None)
Quarter: 2012Q2

REPORT INFORMATION
  Report Type: 
  Country: None (occurrence: None)
  Receive Date: 20120419
  Receipt Date: 20120412
  Transmission Date: 20120825
  Serious: Yes (Hospitalization)
  Sender: FDA-Public Use
  Company Number: DE-PFIZER INC-2012078040

PATIENT
  Age: 55 Year
  Sex: Male
  Weight: 96 kg

DRUGS (29)
  1. SODIUM BICARBONATE [Concomitant]
     Indication: ALKALOSIS
     Dosage: 250 ML, 1-0-0 (8.4%)
     Route: 042
     Dates: start: 20110315, end: 20110322
  2. COMBACTAM [Concomitant]
     Indication: PYREXIA
     Dosage: 1 G INFUSION, 1-1-1
     Dates: start: 20110311, end: 20110317
  3. CYTARABINE [Suspect]
     Indication: ACUTE MYELOID LEUKAEMIA
     Dosage: 1470 MG, CYCLIC, DAYS 1-7
     Dates: start: 20110315
  4. JONOSTERIL [Concomitant]
     Indication: DEHYDRATION
     Dosage: 1 L INFUSION, 1-0-0
     Dates: start: 20110315, end: 20110321
  5. POTASSIUM CHLORIDE [Concomitant]
     Indication: SUPPLEMENTATION THERAPY
     Dosage: BETWEEN 60 TO 120 MVAL
     Dates: start: 20110315, end: 20110330
  6. ALLOPURINOL [Concomitant]
     Indication: PROPHYLAXIS
     Dosage: 300 MG, 1-0-0
     Dates: start: 20110310, end: 20110411
  7. VALORON N [Concomitant]
     Indication: PAIN
     Dosage: 50 GTT, 0-1-1
     Dates: start: 20110312, end: 20110312
  8. VANCOMYCIN [Concomitant]
     Indication: PYREXIA
     Dosage: 1 G INFUSION. 1-0-1
     Dates: start: 20110311, end: 20110317
  9. VESANOID [Concomitant]
     Indication: CHEMOTHERAPY
     Dosage: 9 G CAPSULES, 1-1-1
     Dates: start: 20110320, end: 20110404
  10. DELIX [Concomitant]
     Indication: HYPERTENSION
     Dosage: 5 MG TABLETS, 1-0-0
     Dates: start: 20110310, end: 20110411
  11. GRANISETRON HYDROCHLORIDE [Concomitant]
     Indication: PROPHYLAXIS
     Dosage: 1 MG, 1-0-0
     Route: 042
     Dates: start: 20110315, end: 20110319
  12. METRONIDAZOLE [Concomitant]
     Indication: PYREXIA
     Dosage: 5 G, 0-1-1-1
     Route: 042
     Dates: start: 20110324, end: 20110330
  13. CEFTAZIDIME [Concomitant]
     Indication: PYREXIA
     Dosage: 4 G, 0-1-1
     Route: 042
     Dates: start: 20110324, end: 20110330
  14. VANCOMYCIN [Concomitant]
     Dosage: 1 G INFUSION, 1-0-1
     Dates: start: 20110321, end: 20110329
  15. POSACONAZOLE [Concomitant]
     Indication: PROPHYLAXIS
     Dosage: 5 ML INFUSION, 1-1-1
  16. VERGENTAN [Concomitant]
     Indication: PROPHYLAXIS
     Dosage: 4 AMPULES, 1-0-0
     Route: 042
     Dates: start: 20110315, end: 20110321
  17. LASIX [Concomitant]
     Indication: FLUID OVERLOAD
     Dosage: 20 TO 60 MG, 1-0-0
     Route: 042
     Dates: start: 20110315, end: 20110318
  18. PANTOPRAZOLE [Concomitant]
     Indication: GASTRIC HAEMORRHAGE
     Dosage: 20 MG TABLETS, 0-0-1
     Dates: start: 20110315, end: 20110411
  19. CIPROFLOXACIN [Concomitant]
     Indication: PROPHYLAXIS
     Dosage: 500 MG TABLETS, 1-0-1
     Dates: start: 20110318, end: 20110321
  20. SODIUM CHLORIDE [Concomitant]
     Indication: DEHYDRATION
     Dosage: 2 L INFUSION, 1-0-0 (0.9%)
     Dates: start: 20110315
  21. IDARUBICIN HCL [Suspect]
     Indication: ACUTE MYELOID LEUKAEMIA
     Dosage: 7500 MG, CYCLIC, DAYS 1, 3 AND 5
     Dates: start: 20110315
  22. ETOPOSIDE [Suspect]
     Indication: ACUTE MYELOID LEUKAEMIA
     Dosage: 630 MG, CYCLIC, DAYS 1-3
     Dates: start: 20110315
  23. TRETINOIN [Concomitant]
     Indication: ACUTE MYELOID LEUKAEMIA
     Dosage: 280 MG (45 MG/M2) ON DAYS 6-8 AND 420 MG (15 MG/M2) ON DAYS 9-21, CYCLIC
     Dates: start: 20110320
  24. HEPARIN [Concomitant]
     Indication: PROPHYLAXIS
     Dosage: 2500 IU TO 10000 IU
     Route: 042
     Dates: start: 20110312, end: 20110323
  25. GERNEBCIN [Concomitant]
     Indication: PYREXIA
     Dosage: 300 MG, 1-0-0
     Route: 042
     Dates: start: 20110324, end: 20110330
  26. AMPHOTERICIN B [Concomitant]
     Indication: PROPHYLAXIS
     Dosage: 5 GTT, 1-1-1
     Dates: start: 20110313, end: 20110321
  27. LORAZEPAM [Concomitant]
     Indication: PERSONALITY DISORDER
     Dosage: 1 MG TABLET, 0-0-0-1
     Dates: start: 20110315, end: 20110321
  28. CEFAZOLIN [Concomitant]
     Indication: SURGERY
     Dosage: 2 G INFUSION, 1-1
  29. PIPRIL [Concomitant]
     Indication: PYREXIA
     Dosage: 4 G INFUSION, 1-1-1
     Dates: start: 20110311, end: 20110317

REACTIONS (1)
  - BRONCHITIS [None]
